FAERS Safety Report 8268591-0 (Version None)
Quarter: 2012Q2

REPORT INFORMATION
  Report Type: 
  Country: None (occurrence: None)
  Receive Date: 20120409
  Receipt Date: 20120405
  Transmission Date: 20120825
  Serious: Yes (Other)
  Sender: FDA-Public Use
  Company Number: FR-ABBOTT-12P-056-0922322-00

PATIENT
  Sex: Female
  Weight: 58 kg

DRUGS (2)
  1. KALETRA [Suspect]
     Indication: PROPHYLAXIS AGAINST HIV INFECTION
     Route: 048
     Dates: start: 20120225, end: 20120226
  2. TRUVADA [Suspect]
     Indication: PROPHYLAXIS AGAINST HIV INFECTION
     Dosage: 200MG/245MG TID
     Route: 048
     Dates: start: 20120225, end: 20120226

REACTIONS (4)
  - DIPLOPIA [None]
  - ABDOMINAL PAIN [None]
  - HEADACHE [None]
  - VERTIGO [None]
